FAERS Safety Report 17471156 (Version 2)
Quarter: 2020Q1

REPORT INFORMATION
  Report Type: Spontaneous
  Country: JP (occurrence: JP)
  Receive Date: 20200228
  Receipt Date: 20200310
  Transmission Date: 20200409
  Serious: Yes (Other)
  Sender: FDA-Public Use
  Company Number: JP-UCBSA-2020007768

PATIENT
  Age: 85 Year
  Sex: Female

DRUGS (2)
  1. E KEPPRA [Suspect]
     Active Substance: LEVETIRACETAM
     Indication: PRODUCT USED FOR UNKNOWN INDICATION
     Dosage: 250 MILLIGRAM, 2X/DAY (BID)
     Route: 048
  2. E KEPPRA [Suspect]
     Active Substance: LEVETIRACETAM
     Dosage: 600 MILLIGRAM
     Route: 048

REACTIONS (3)
  - Physical deconditioning [Unknown]
  - Somnolence [Unknown]
  - Epilepsy [Unknown]
